FAERS Safety Report 20603054 (Version 1)
Quarter: 2022Q1

REPORT INFORMATION
  Report Type: Spontaneous
  Country: US (occurrence: US)
  Receive Date: 20220316
  Receipt Date: 20220316
  Transmission Date: 20220423
  Serious: No
  Sender: FDA-Public Use
  Company Number: US-SAREPTA THERAPEUTICS INC.-SRP2022-002061

PATIENT
  Age: 10 Year
  Sex: Male
  Weight: 45.35 kg

DRUGS (20)
  1. VYONDYS 53 [Suspect]
     Active Substance: GOLODIRSEN
     Indication: Duchenne muscular dystrophy
     Dosage: 1300 MILLIGRAM, WEEKLY
     Route: 042
     Dates: start: 20210820, end: 20220127
  2. VYONDYS 53 [Suspect]
     Active Substance: GOLODIRSEN
     Dosage: 1300 MILLIGRAM, WEEKLY
     Route: 042
     Dates: start: 20220209
  3. EMFLAZA [Concomitant]
     Active Substance: DEFLAZACORT
     Indication: Product used for unknown indication
     Dosage: 1.6 MILLILITER, QD
     Route: 048
     Dates: start: 20210723
  4. PROAIR HFA [Concomitant]
     Active Substance: ALBUTEROL SULFATE
     Indication: Wheezing
     Dosage: 180 MICROGRAM, Q4H (90 MCG/PUFF) 2 PUFFS PRN
     Route: 048
     Dates: start: 20201005
  5. PROAIR HFA [Concomitant]
     Active Substance: ALBUTEROL SULFATE
     Dosage: 360 MICROGRAM, Q4H (90 MCG/PUFF) 4 PUFFS AS NEEDED
     Route: 048
     Dates: start: 20210817
  6. ABILIFY [Concomitant]
     Active Substance: ARIPIPRAZOLE
     Indication: Product used for unknown indication
     Dosage: 5 MILLIGRAM QD
     Route: 048
     Dates: start: 20210930, end: 20211123
  7. CALCIUM CARBONATE [Concomitant]
     Active Substance: CALCIUM CARBONATE
     Indication: Product used for unknown indication
     Dosage: (500) 1 TAB, QD
     Route: 048
  8. CETIRIZINE [Concomitant]
     Active Substance: CETIRIZINE HYDROCHLORIDE
     Indication: Product used for unknown indication
     Dosage: 10 MILLIGRAM, QD
     Route: 048
     Dates: start: 20210817
  9. VITAMIN D3 [Concomitant]
     Active Substance: CHOLECALCIFEROL
     Indication: Product used for unknown indication
     Dosage: 25 MCG (1000UT) , 2 TABS QD
     Route: 048
  10. CLONIDINE [Concomitant]
     Active Substance: CLONIDINE
     Indication: Product used for unknown indication
     Dosage: 0.2 MILLIGRAM, QD
     Route: 048
     Dates: start: 20210920, end: 20211118
  11. MUCINEX [Concomitant]
     Active Substance: GUAIFENESIN
     Indication: Cough
     Dosage: 5MG-100MG/5ML, 5 ML AS NEEDED
     Route: 048
     Dates: start: 20201005
  12. MUCINEX [Concomitant]
     Active Substance: GUAIFENESIN
     Indication: Pulmonary congestion
  13. ERGOCALCIFEROL [Concomitant]
     Active Substance: ERGOCALCIFEROL
     Indication: Product used for unknown indication
     Dosage: 7 ML, 1X PER WEEK X8 WEEKS
     Route: 048
     Dates: start: 20210817
  14. FAMOTIDINE [Concomitant]
     Active Substance: FAMOTIDINE
     Indication: Product used for unknown indication
     Dosage: 40 MILLIGRAM, BID
     Route: 048
     Dates: start: 20210817
  15. FLONASE [Concomitant]
     Active Substance: FLUTICASONE PROPIONATE
     Indication: Product used for unknown indication
     Dosage: 50 MCG, 1 SPRAY INTO EACH NOSTRIL, QD
     Route: 045
  16. FLOVENT HFA [Concomitant]
     Active Substance: FLUTICASONE PROPIONATE
     Indication: Product used for unknown indication
     Dosage: 44 MCG/PUFF, 2 PUFFS
     Dates: start: 20210817
  17. MELATONIN [Concomitant]
     Active Substance: MELATONIN
     Indication: Product used for unknown indication
     Dosage: 5 MILLIGRAM, QD
     Route: 048
     Dates: start: 20210817
  18. BACTROBAN [Concomitant]
     Active Substance: MUPIROCIN\MUPIROCIN CALCIUM
     Indication: Product used for unknown indication
     Dosage: 2 PERCENT, TID
     Route: 061
     Dates: start: 20210608
  19. VITAMINS [Concomitant]
     Active Substance: VITAMINS
     Indication: Product used for unknown indication
     Dosage: 1 TABLET DAILY
  20. SODIUM CHLORIDE [Concomitant]
     Active Substance: SODIUM CHLORIDE
     Indication: Product used for unknown indication
     Dosage: 3 MIL, BID

REACTIONS (2)
  - Intentional dose omission [Unknown]
  - No adverse event [Unknown]

NARRATIVE: CASE EVENT DATE: 20220202
